FAERS Safety Report 6974597-1 (Version None)
Quarter: 2010Q3

REPORT INFORMATION
  Report Type: 
  Country: None (occurrence: None)
  Receive Date: 20100909
  Receipt Date: 20100909
  Transmission Date: 20110219
  Serious: Yes (Hospitalization)
  Sender: FDA-Public Use
  Company Number: None

PATIENT
  Sex: Male
  Weight: 100.2449 kg

DRUGS (2)
  1. REVLIMID [Suspect]
     Indication: CHRONIC LYMPHOCYTIC LEUKAEMIA
     Dosage: 200MG (4 X 5MG) QD PO
     Route: 048
     Dates: start: 20100819, end: 20100905
  2. RITUXIMAB GENETECH PHARMACEUTICALS, INC. [Suspect]
     Indication: CHRONIC LYMPHOCYTIC LEUKAEMIA
     Dosage: 375MG/M2 Q WEEK X 4 WEEKS IV
     Route: 042
     Dates: start: 20100902, end: 20100902

REACTIONS (6)
  - ABDOMINAL PAIN UPPER [None]
  - DYSPNOEA [None]
  - FEBRILE NEUTROPENIA [None]
  - HYPERHIDROSIS [None]
  - INFECTION [None]
  - OEDEMA PERIPHERAL [None]
